FAERS Safety Report 5578509-7 (Version None)
Quarter: 2007Q4

REPORT INFORMATION
  Report Type: 
  Country: None (occurrence: None)
  Receive Date: 20071231
  Receipt Date: 20071220
  Transmission Date: 20080405
  Serious: Yes (Hospitalization, Other)
  Sender: FDA-Public Use
  Company Number: IT-PFIZER INC-2007107317

PATIENT
  Age: 36 Year
  Sex: Male

DRUGS (5)
  1. CLOZAPINE [Suspect]
  2. LITHIUM [Interacting]
  3. LORAZEPAM [Interacting]
     Dosage: DAILY DOSE:2.5MG
  4. CITALOPRAM HYDROBROMIDE [Interacting]
  5. CLOMIPRAMINE HCL [Interacting]
     Dosage: DAILY DOSE:75MG

REACTIONS (11)
  - AGRANULOCYTOSIS [None]
  - BACTERIAL TOXAEMIA [None]
  - BLOOD CREATININE INCREASED [None]
  - BLOOD FIBRINOGEN INCREASED [None]
  - C-REACTIVE PROTEIN INCREASED [None]
  - DRUG INTERACTION [None]
  - HEPATIC ENZYME INCREASED [None]
  - HYPOKALAEMIA [None]
  - INFUSION SITE REACTION [None]
  - RED BLOOD CELL SEDIMENTATION RATE INCREASED [None]
  - RENAL DISORDER [None]
